FAERS Safety Report 16692533 (Version 12)
Quarter: 2021Q1

REPORT INFORMATION
  Report Type: Spontaneous
  Country: US (occurrence: US)
  Receive Date: 20190812
  Receipt Date: 20210309
  Transmission Date: 20210419
  Serious: No
  Sender: FDA-Public Use
  Company Number: US-PFIZER INC-2019339262

PATIENT
  Age: 64 Year
  Sex: Male
  Weight: 119.75 kg

DRUGS (6)
  1. CAVERJECT [Suspect]
     Active Substance: ALPROSTADIL
     Indication: SEXUAL DYSFUNCTION
     Dosage: 20 UG, WEEKLY
  2. CAVERJECT [Suspect]
     Active Substance: ALPROSTADIL
     Dosage: RECONSTITUTED ALPROSTADIL OF 20MCG WITH 7CC OF WATER AND THEN ONLY USES 1 CC^
  3. CAVERJECT [Suspect]
     Active Substance: ALPROSTADIL
     Indication: CEREBROVASCULAR ACCIDENT
     Dosage: 40 MG, WEEKLY
  4. CAVERJECT [Suspect]
     Active Substance: ALPROSTADIL
     Dosage: 20 MG, WEEKLY
  5. CAVERJECT [Suspect]
     Active Substance: ALPROSTADIL
     Dosage: 40 MG
  6. METFORMIN [Concomitant]
     Active Substance: METFORMIN HYDROCHLORIDE
     Indication: DIABETES MELLITUS
     Dosage: 500 MG

REACTIONS (5)
  - Memory impairment [Unknown]
  - Muscular weakness [Unknown]
  - Wrong technique in product usage process [Unknown]
  - Erection increased [Unknown]
  - Ejaculation failure [Unknown]
